FAERS Safety Report 7020206-5 (Version None)
Quarter: 2010Q3

REPORT INFORMATION
  Report Type: 
  Country: None (occurrence: None)
  Receive Date: 20100927
  Receipt Date: 20100915
  Transmission Date: 20110219
  Serious: Yes (Hospitalization, Other)
  Sender: FDA-Public Use
  Company Number: 2010AC000512

PATIENT
  Age: 79 Year
  Sex: Male

DRUGS (27)
  1. DIGOXIN [Suspect]
     Dosage: 0.25 MG; QD; PO
     Route: 048
     Dates: start: 20040901
  2. DIGOXIN [Suspect]
     Dosage: 0.125 MG; QD; PO
     Route: 048
     Dates: start: 20070401
  3. DIGOXIN [Suspect]
     Dosage: 0.125 MG; QOD; PO
     Route: 048
     Dates: start: 20070501
  4. FUROSEMIDE [Concomitant]
  5. POTASSIUM [Concomitant]
  6. GLYBURIDE [Concomitant]
  7. METFORMIN [Concomitant]
  8. WARFARIN SODIUM [Concomitant]
  9. IBUPROFEN [Concomitant]
  10. LANTUS [Concomitant]
  11. LOPID [Concomitant]
  12. NIFEDIPINE [Concomitant]
  13. SIMVASTATIN [Concomitant]
  14. COREG [Concomitant]
  15. DOPAMINE [Concomitant]
  16. CARDIZEM [Concomitant]
  17. AMIODARONE [Concomitant]
  18. ATACAND [Concomitant]
  19. DILTIAZEM [Concomitant]
  20. ZANTAC [Concomitant]
  21. TRICOR [Concomitant]
  22. GEMFIBROZIL [Concomitant]
  23. KLOR-CON [Concomitant]
  24. SUCRALFATE [Concomitant]
  25. ADVAIR DISKUS 100/50 [Concomitant]
  26. LOPRESSOR [Concomitant]
  27. ASPIRIN [Concomitant]

REACTIONS (26)
  - ACUTE MYOCARDIAL INFARCTION [None]
  - ANAEMIA [None]
  - ARTHRALGIA [None]
  - ASTHENIA [None]
  - CARDIAC FAILURE CONGESTIVE [None]
  - CHRONIC OBSTRUCTIVE PULMONARY DISEASE [None]
  - CORONARY ARTERY STENOSIS [None]
  - DIZZINESS [None]
  - DYSPNOEA [None]
  - ECONOMIC PROBLEM [None]
  - EMOTIONAL DISORDER [None]
  - FATIGUE [None]
  - GASTRITIS [None]
  - GASTROINTESTINAL HAEMORRHAGE [None]
  - MELAENA [None]
  - MENTAL DISORDER [None]
  - MYOCARDIAL ISCHAEMIA [None]
  - NAUSEA [None]
  - NEPHROSCLEROSIS [None]
  - PAIN IN EXTREMITY [None]
  - PALPITATIONS [None]
  - PNEUMONIA [None]
  - TREATMENT NONCOMPLIANCE [None]
  - VISUAL IMPAIRMENT [None]
  - VOMITING [None]
  - WHEEZING [None]
